FAERS Safety Report 7322501-9 (Version None)
Quarter: 2011Q1

REPORT INFORMATION
  Report Type: 
  Country: None (occurrence: None)
  Receive Date: 20110301
  Receipt Date: 20110215
  Transmission Date: 20110831
  Serious: Yes (Hospitalization)
  Sender: FDA-Public Use
  Company Number: IT-BAYER-2011-015201

PATIENT
  Sex: Female
  Weight: 50 kg

DRUGS (7)
  1. OXYCONTIN [Concomitant]
     Indication: NECK PAIN
     Dosage: 10 MG, UNK
     Dates: start: 20091201, end: 20101222
  2. SORAFENIB (RAF KINASE INHIBITOR) [Suspect]
     Dosage: 400 MG, BID
     Route: 048
     Dates: start: 20101227, end: 20110115
  3. SORAFENIB (RAF KINASE INHIBITOR) [Suspect]
     Indication: THYROID CANCER
     Dosage: 400 MG, UNK
     Route: 048
     Dates: start: 20101108, end: 20101223
  4. ACYCLOVIR [Concomitant]
     Indication: HERPES ZOSTER
     Dosage: 3200 MG, UNK
     Dates: start: 20101020, end: 20101102
  5. EUTIROX [Concomitant]
     Indication: POST PROCEDURAL HYPOTHYROIDISM
     Dosage: 75 ?G, UNK
     Dates: start: 19980801, end: 20110120
  6. COLECALCIFEROL [Concomitant]
     Indication: HYPOVITAMINOSIS
     Dosage: 10000 IU, UNK
     Dates: start: 20100201
  7. ZOMETA [Concomitant]
     Indication: METASTASES TO BONE
     Dosage: UNK

REACTIONS (1)
  - BONE ABSCESS [None]
